FAERS Safety Report 6549036-5 (Version None)
Quarter: 2010Q1

REPORT INFORMATION
  Report Type: 
  Country: None (occurrence: None)
  Receive Date: 20100125
  Receipt Date: 20100121
  Transmission Date: 20100710
  Serious: Yes (Death)
  Sender: FDA-Public Use
  Company Number: JP-JNJFOC-20091202972

PATIENT
  Sex: Female
  Weight: 35 kg

DRUGS (18)
  1. DUROTEP MT PATCH [Suspect]
     Indication: MALIGNANT ASCITES
     Route: 062
     Dates: start: 20091201
  2. DUROTEP MT PATCH [Suspect]
     Indication: GASTRIC CANCER
     Route: 062
     Dates: start: 20091201
  3. DUROTEP MT PATCH [Suspect]
     Indication: CANCER PAIN
     Route: 062
     Dates: start: 20091201
  4. VOLTAREN [Suspect]
     Indication: MALIGNANT ASCITES
     Route: 048
     Dates: start: 20091201
  5. VOLTAREN [Suspect]
     Indication: GASTRIC CANCER
     Route: 048
     Dates: start: 20091201
  6. VOLTAREN [Suspect]
     Indication: CANCER PAIN
     Route: 048
     Dates: start: 20091201
  7. VOLTAREN [Suspect]
     Indication: ANALGESIC THERAPY
     Route: 048
     Dates: start: 20091201
  8. LOXONIN [Concomitant]
     Indication: MALIGNANT ASCITES
     Route: 048
     Dates: start: 20091019
  9. LOXONIN [Concomitant]
     Indication: GASTRIC CANCER
     Route: 048
     Dates: start: 20091019
  10. LOXONIN [Concomitant]
     Indication: CANCER PAIN
     Route: 048
     Dates: start: 20091019
  11. LOXONIN [Concomitant]
     Indication: ANALGESIC THERAPY
     Route: 048
     Dates: start: 20091019
  12. MUCOSTA [Concomitant]
     Indication: GASTRIC CANCER
     Route: 048
  13. MUCOSTA [Concomitant]
     Indication: GASTRITIS
     Route: 048
  14. OMEPRAL [Concomitant]
     Indication: REFLUX OESOPHAGITIS
     Route: 048
  15. OMEPRAL [Concomitant]
     Indication: GASTRIC CANCER
     Route: 048
  16. OMEPRAL [Concomitant]
     Indication: GASTRIC ULCER
     Route: 048
  17. ARICEPT [Concomitant]
     Indication: DEMENTIA ALZHEIMER'S TYPE
     Route: 048
     Dates: start: 20090923
  18. LOPEMIN [Concomitant]
     Indication: DIARRHOEA
     Route: 048

REACTIONS (2)
  - BLOOD PRESSURE DECREASED [None]
  - RESPIRATORY DEPRESSION [None]
